FAERS Safety Report 9121188 (Version 3)
Quarter: 2013Q2

REPORT INFORMATION
  Report Type: Report from Study
  Country: US (occurrence: US)
  Receive Date: 20130115
  Receipt Date: 20130520
  Transmission Date: 20140414
  Serious: Yes (Other)
  Sender: FDA-Public Use
  Company Number: US-PFIZER INC-2011167355

PATIENT
  Age: 48 Year
  Sex: Female
  Weight: 69.39 kg

DRUGS (6)
  1. PRISTIQ [Suspect]
     Indication: DEPRESSION
     Dosage: 50 MG, 1X/DAY
     Route: 048
     Dates: end: 2011
  2. PRISTIQ [Interacting]
     Dosage: UNK
     Route: 048
     Dates: start: 2011
  3. PRISTIQ [Interacting]
     Dosage: 50 MG, 1X/DAY
     Route: 048
     Dates: end: 2013
  4. PRISTIQ [Interacting]
     Dosage: 100 MG, 1X/DAY
     Route: 048
     Dates: start: 2013
  5. ARIMIDEX [Interacting]
     Indication: BREAST CANCER
     Dosage: UNK
     Dates: start: 2013
  6. TAMOXIFEN [Concomitant]
     Dosage: UNK

REACTIONS (11)
  - Hypertension [Not Recovered/Not Resolved]
  - Dyspnoea [Unknown]
  - Anxiety [Unknown]
  - Heart rate increased [Unknown]
  - Depression [Not Recovered/Not Resolved]
  - Breast cancer female [Not Recovered/Not Resolved]
  - Drug interaction [Unknown]
  - Drug ineffective [Unknown]
  - Insomnia [Unknown]
  - Frustration [Unknown]
  - Feeling abnormal [Not Recovered/Not Resolved]
